FAERS Safety Report 8170527-8 (Version None)
Quarter: 2012Q1

REPORT INFORMATION
  Report Type: 
  Country: None (occurrence: None)
  Receive Date: 20120106
  Receipt Date: 20110510
  Transmission Date: 20120608
  Serious: Yes (Hospitalization)
  Sender: FDA-Public Use
  Company Number: US-006073

PATIENT
  Age: 51 Year
  Sex: Female
  Weight: 129 kg

DRUGS (2)
  1. MULTIHANCE [Suspect]
     Indication: ABSCESS
     Dosage: 15ML ONCE INTRAVENOUS (NOT OTHERWISE SPECIFIED)
     Route: 042
     Dates: start: 20110405, end: 20110405
  2. MULTIHANCE [Suspect]
     Indication: NUCLEAR MAGNETIC RESONANCE IMAGING
     Dosage: 15ML ONCE INTRAVENOUS (NOT OTHERWISE SPECIFIED)
     Route: 042
     Dates: start: 20110405, end: 20110405

REACTIONS (1)
  - ANAPHYLACTIC REACTION [None]
